FAERS Safety Report 12209524 (Version 6)
Quarter: 2016Q2

REPORT INFORMATION
  Report Type: Spontaneous
  Country: US (occurrence: US)
  Receive Date: 20160324
  Receipt Date: 20160609
  Transmission Date: 20160815
  Serious: Yes (Other)
  Sender: FDA-Public Use
  Company Number: US-AMGEN-USASP2016035157

PATIENT
  Age: 37 Year
  Sex: Male
  Weight: 56.24 kg

DRUGS (21)
  1. EPOGEN [Suspect]
     Active Substance: ERYTHROPOIETIN
     Indication: END STAGE RENAL DISEASE
     Dosage: 15000 UNK, 2 TIMES/WK
     Route: 065
     Dates: start: 201602, end: 201603
  2. DESYREL [Concomitant]
     Active Substance: TRAZODONE HYDROCHLORIDE
     Dosage: 50 MG, TAKE 1 TABLET ORALLY DAILY AT BED TIME
     Route: 048
  3. EPOGEN [Suspect]
     Active Substance: ERYTHROPOIETIN
     Dosage: UNK
     Route: 065
  4. FLONASE [Concomitant]
     Active Substance: FLUTICASONE PROPIONATE
     Dosage: USE 2 SPRAYS IN EACH NOSTRIL DAILY
  5. COZAAR [Concomitant]
     Active Substance: LOSARTAN POTASSIUM
     Dosage: 50 MG, DAILY
     Route: 048
  6. K-TAB [Concomitant]
     Active Substance: POTASSIUM CHLORIDE
     Dosage: TAKE 1 TABLET BY RNOUTH 2 TIMES A DAY
     Route: 048
  7. EPOGEN [Suspect]
     Active Substance: ERYTHROPOIETIN
     Dosage: UNK
     Route: 065
  8. STOOL SOFTENER [Concomitant]
     Active Substance: DOCUSATE CALCIUM
     Dosage: 100 MG, TAKE 1 TO 2 CAPSULES BY MOUTH AT BEDTIME AS NEEDED FOR CONSTIPATION
     Route: 048
  9. ALBUTEROL                          /00139501/ [Concomitant]
     Active Substance: ALBUTEROL
     Dosage: 90 MCG, UNK
  10. ROCALTROL [Concomitant]
     Active Substance: CALCITRIOL
     Dosage: 0.25 MCG, TAKE 2 CAPSULES BY MOUTH DAILY
     Route: 048
  11. VITAMIN B COMPLEX WITH VITAMIN C + FOLIC ACID [Concomitant]
     Dosage: 0.8 MG, TAKE 1 TABLET BY MOUTH DAILY
     Route: 048
  12. ZOFRAN [Concomitant]
     Active Substance: ONDANSETRON HYDROCHLORIDE
     Dosage: 4 MG, TAKE 1 TABLET ORALLY EVERY 8 TO 12 HOURS AS NEEDED FOR NAUSEA AND VOMITING
     Route: 048
  13. HYDROCORTISONE. [Concomitant]
     Active Substance: HYDROCORTISONE
     Dosage: UNK, 2 TIMES A DAY
  14. EPOGEN [Suspect]
     Active Substance: ERYTHROPOIETIN
     Indication: RENAL FAILURE
     Dosage: UNK
     Route: 065
  15. LOSARTAN. [Suspect]
     Active Substance: LOSARTAN
     Indication: PRODUCT USED FOR UNKNOWN INDICATION
     Dosage: UNK
     Route: 065
     Dates: start: 20150617
  16. LACTULOSE. [Concomitant]
     Active Substance: LACTULOSE
     Indication: CONSTIPATION
     Dosage: TAKE 2 TABLESPOONFULS ORALLY 2 TIMUS A DAY WHEN NECDED FOR CONSTIPATION
     Route: 048
  17. EPOGEN [Suspect]
     Active Substance: ERYTHROPOIETIN
     Indication: CONGENITAL CYSTIC KIDNEY DISEASE
     Dosage: UNK
     Route: 065
  18. EPOGEN [Suspect]
     Active Substance: ERYTHROPOIETIN
     Dosage: UNK
     Route: 065
  19. PROCRIT [Suspect]
     Active Substance: ERYTHROPOIETIN
     Indication: PRODUCT USED FOR UNKNOWN INDICATION
     Dosage: UNK
     Route: 065
  20. ELIPHOS [Concomitant]
     Active Substance: CALCIUM ACETATE
     Dosage: 667 MG, UNK
     Route: 048
  21. GARAMYCIN [Concomitant]
     Active Substance: GENTAMICIN SULFATE
     Dosage: UNK, APPLY TO PERITONEAL DIALYSIS EXIT SITE DAILY

REACTIONS (5)
  - Anti-erythropoietin antibody positive [Unknown]
  - Drug ineffective [Unknown]
  - Anaemia [Unknown]
  - Aplasia pure red cell [Not Recovered/Not Resolved]
  - Asthenia [Unknown]

NARRATIVE: CASE EVENT DATE: 201601
